FAERS Safety Report 17926521 (Version 5)
Quarter: 2021Q1

REPORT INFORMATION
  Report Type: Report from Study
  Country: FR (occurrence: FR)
  Receive Date: 20200622
  Receipt Date: 20210219
  Transmission Date: 20210419
  Serious: Yes (Death, Life-Threatening, Hospitalization, Other)
  Sender: FDA-Public Use
  Company Number: FR-INCYTE CORPORATION-2019IN006615

PATIENT

DRUGS (2)
  1. JAKAVI [Suspect]
     Active Substance: RUXOLITINIB
     Indication: MYELOFIBROSIS
     Dosage: 10 MG, DAILY
     Route: 048
     Dates: start: 20190320, end: 20190416
  2. JAKAVI [Suspect]
     Active Substance: RUXOLITINIB
     Dosage: 5 MG, DAILY
     Route: 048
     Dates: start: 20190417, end: 20191105

REACTIONS (10)
  - Renal haematoma [Not Recovered/Not Resolved]
  - Myelofibrosis [Fatal]
  - Pain [Unknown]
  - Vertigo [Recovered/Resolved]
  - Haematuria [Unknown]
  - Thrombocytopenia [Not Recovered/Not Resolved]
  - Liver injury [Unknown]
  - Cholestasis [Not Recovered/Not Resolved]
  - Urinary tract infection [Recovering/Resolving]
  - General physical health deterioration [Fatal]

NARRATIVE: CASE EVENT DATE: 20190416
